FAERS Safety Report 6176526-X (Version None)
Quarter: 2009Q2

REPORT INFORMATION
  Report Type: 
  Country: None (occurrence: None)
  Receive Date: 20090501
  Receipt Date: 20090421
  Transmission Date: 20091009
  Serious: Yes (Other)
  Sender: FDA-Public Use
  Company Number: US-JNJFOC-20090400897

PATIENT
  Sex: Female
  Weight: 47.17 kg

DRUGS (9)
  1. REMICADE [Suspect]
     Route: 042
  2. REMICADE [Suspect]
     Indication: CROHN'S DISEASE
     Dosage: 5 DOSES
     Route: 042
  3. TOPAMAX [Suspect]
     Indication: DRUG USE FOR UNKNOWN INDICATION
  4. CYMBALTA [Concomitant]
     Indication: MIGRAINE
  5. PREDNISONE [Concomitant]
     Indication: ARTHRITIS
  6. IMURAN [Concomitant]
     Indication: CROHN'S DISEASE
  7. VITAMIN D [Concomitant]
     Indication: VITAMIN D DEFICIENCY
  8. VICOPROFEN [Concomitant]
     Indication: ARTHRITIS
  9. LIALDA [Concomitant]
     Indication: CROHN'S DISEASE

REACTIONS (13)
  - ARTHRALGIA [None]
  - ATAXIA [None]
  - BACK PAIN [None]
  - DIARRHOEA [None]
  - DIZZINESS [None]
  - DYSPNOEA [None]
  - DYSTONIA [None]
  - INFUSION RELATED REACTION [None]
  - MULTIPLE SCLEROSIS [None]
  - POSTURE ABNORMAL [None]
  - TACHYCARDIA [None]
  - VERTIGO [None]
  - WEIGHT DECREASED [None]
